FAERS Safety Report 5195806-8 (Version None)
Quarter: 2007Q1

REPORT INFORMATION
  Report Type: 
  Country: None (occurrence: None)
  Receive Date: 20070102
  Receipt Date: 20061220
  Transmission Date: 20070707
  Serious: Yes (Other)
  Sender: FDA-Public Use
  Company Number: PHFR2006GB03574

PATIENT
  Age: 59 Year
  Sex: Male

DRUGS (5)
  1. VOLTAROL RETARD [Suspect]
     Indication: RHEUMATOID ARTHRITIS
     Dosage: 75MG
     Route: 065
  2. ATORVASTATIN CALCIUM [Concomitant]
     Dosage: 20MG/DAY
     Route: 048
  3. METHOTREXATE [Concomitant]
     Dosage: 20 MG, QW
     Route: 048
  4. FOLIC ACID [Concomitant]
     Dosage: 5MG/DAY
     Route: 048
  5. OMEPRAZOLE [Concomitant]
     Dosage: 10MG/DAY
     Route: 048

REACTIONS (2)
  - ANGINA PECTORIS [None]
  - ARTHRALGIA [None]
